FAERS Safety Report 5219011-1 (Version None)
Quarter: 2007Q1

REPORT INFORMATION
  Report Type: 
  Country: None (occurrence: None)
  Receive Date: 20070125
  Receipt Date: 20070116
  Transmission Date: 20070707
  Serious: Yes (Other)
  Sender: FDA-Public Use
  Company Number: JP-BAYER-200611295BYL

PATIENT
  Age: 28 Year
  Sex: Male

DRUGS (13)
  1. ADALAT [Suspect]
     Indication: HYPERTENSION
     Dosage: TOTAL DAILY DOSE: 40 MG  UNIT DOSE: 20 MG
     Route: 048
     Dates: start: 20061205
  2. AMLODIPINE BESYLATE [Suspect]
     Indication: HYPERTENSION
     Dosage: TOTAL DAILY DOSE: 10 MG  UNIT DOSE: 5 MG
     Route: 048
     Dates: start: 20061207, end: 20061218
  3. ARTIST [Suspect]
     Indication: HYPERTENSION
     Dosage: TOTAL DAILY DOSE: 10 MG  UNIT DOSE: 10 MG
     Route: 048
     Dates: start: 20061206, end: 20061219
  4. BLOPRESS [Suspect]
     Indication: HYPERTENSION
     Dosage: TOTAL DAILY DOSE: 4 MG  UNIT DOSE: 4 MG
     Route: 048
     Dates: start: 20061202, end: 20061203
  5. BLOPRESS [Suspect]
     Dosage: TOTAL DAILY DOSE: 8 MG  UNIT DOSE: 4 MG
     Route: 048
     Dates: start: 20061204, end: 20061218
  6. BLOPRESS [Suspect]
     Dosage: AS USED: 2-0-1 MG  UNIT DOSE: 4 MG
     Route: 048
     Dates: start: 20061219
  7. CARDENALIN [Suspect]
     Indication: HYPERTENSION
     Dosage: TOTAL DAILY DOSE: 4 MG  UNIT DOSE: 1 MG
     Route: 048
     Dates: start: 20061129, end: 20061217
  8. CARDENALIN [Suspect]
     Dosage: TOTAL DAILY DOSE: 2 MG  UNIT DOSE: 1 MG
     Route: 048
     Dates: start: 20061128, end: 20061128
  9. CARDENALIN [Suspect]
     Dosage: TOTAL DAILY DOSE: 8 MG  UNIT DOSE: 1 MG
     Route: 048
     Dates: start: 20061218
  10. TAKEPRON [Suspect]
     Dosage: TOTAL DAILY DOSE: 15 MG  UNIT DOSE: 15 MG
     Route: 048
     Dates: start: 20061125
  11. ADALAT [Concomitant]
     Indication: HYPERTENSION
     Dosage: TOTAL DAILY DOSE: 40 MG  UNIT DOSE: 20 MG
     Route: 048
     Dates: start: 20061125, end: 20061205
  12. CARNACULIN [Concomitant]
     Indication: RETINAL HAEMORRHAGE
     Dosage: UNIT DOSE: 25 MG
     Route: 048
     Dates: start: 20061127
  13. ADONA [Concomitant]
     Indication: RETINAL HAEMORRHAGE
     Dosage: UNIT DOSE: 30 MG
     Route: 048
     Dates: start: 20061127

REACTIONS (8)
  - ALANINE AMINOTRANSFERASE ABNORMAL [None]
  - BLOOD ALKALINE PHOSPHATASE ABNORMAL [None]
  - GAMMA-GLUTAMYLTRANSFERASE ABNORMAL [None]
  - HYPERTENSION [None]
  - LIVER DISORDER [None]
  - RENAL IMPAIRMENT [None]
  - THROMBOSIS [None]
  - UPPER RESPIRATORY TRACT INFLAMMATION [None]
